FAERS Safety Report 11835807 (Version 1)
Quarter: 2015Q4

REPORT INFORMATION
  Report Type: Spontaneous
  Country: JP (occurrence: JP)
  Receive Date: 20151215
  Receipt Date: 20151215
  Transmission Date: 20160305
  Serious: Yes (Hospitalization)
  Sender: FDA-Public Use
  Company Number: PHHY2015JP163643

PATIENT
  Age: 78 Year
  Sex: Female

DRUGS (1)
  1. ZOLEDRONATE [Suspect]
     Active Substance: ZOLEDRONIC ACID
     Indication: BREAST CANCER
     Dosage: 4 MG, QMO
     Route: 042
     Dates: start: 2006

REACTIONS (11)
  - Osteonecrosis of jaw [Unknown]
  - Bone pain [Recovered/Resolved]
  - Exposed bone in jaw [Unknown]
  - Bone abscess [Unknown]
  - Oedema mucosal [Unknown]
  - Fistula discharge [Unknown]
  - Pathological fracture [Unknown]
  - Osteitis [Unknown]
  - Osteomyelitis [Unknown]
  - Lip swelling [Recovering/Resolving]
  - Bone lesion [Unknown]

NARRATIVE: CASE EVENT DATE: 201012
